FAERS Safety Report 24282766 (Version 3)
Quarter: 2024Q4

REPORT INFORMATION
  Report Type: Spontaneous
  Country: US (occurrence: US)
  Receive Date: 20240904
  Receipt Date: 20241024
  Transmission Date: 20250115
  Serious: No
  Sender: PFIZER
  Company Number: US-PFIZER INC-202400248514

PATIENT
  Age: 79 Year
  Sex: Male

DRUGS (36)
  1. INLYTA [Suspect]
     Active Substance: AXITINIB
     Dosage: 5 MG, 2X/DAY (EVERY 12 HOURS)
     Dates: start: 20240816, end: 20240830
  2. INLYTA [Suspect]
     Active Substance: AXITINIB
     Dosage: ONE 1MG TABLET ORALLY EVERY 12 HOURS
     Route: 048
     Dates: start: 2024
  3. ASPIRIN ANALGESIC [Concomitant]
  4. AVODART [Concomitant]
     Active Substance: DUTASTERIDE
  5. BACTRIM DS [Concomitant]
     Active Substance: SULFAMETHOXAZOLE\TRIMETHOPRIM
  6. BENZONATATE [Concomitant]
     Active Substance: BENZONATATE
  7. OXYMETAZOLINE HYDROCHLORIDE [Concomitant]
     Active Substance: OXYMETAZOLINE HYDROCHLORIDE
  8. COQ10 [PIPER NIGRUM;UBIDECARENONE] [Concomitant]
  9. MORNIFLUMATE [Concomitant]
     Active Substance: MORNIFLUMATE
  10. HIZENTRA [Concomitant]
     Active Substance: HUMAN IMMUNOGLOBULIN G
  11. IPRATROPIUM BROMIDE AND ALBUTEROL SULFATE [Concomitant]
     Active Substance: ALBUTEROL SULFATE\IPRATROPIUM BROMIDE
  12. LATANOPROST [Concomitant]
     Active Substance: LATANOPROST
  13. LEVOTHYROXINE [Concomitant]
     Active Substance: LEVOTHYROXINE
  14. METFORMIN [Concomitant]
     Active Substance: METFORMIN HYDROCHLORIDE
  15. METHOCARBAMOL [Concomitant]
     Active Substance: METHOCARBAMOL
  16. MIRALAX [Concomitant]
     Active Substance: POLYETHYLENE GLYCOL 3350
  17. MYRBETRIQ [Concomitant]
     Active Substance: MIRABEGRON
  18. NOVOLOG [Concomitant]
     Active Substance: INSULIN ASPART
  19. NYSTATIN [Concomitant]
     Active Substance: NYSTATIN
  20. ONDANSETRON [Concomitant]
     Active Substance: ONDANSETRON
  21. OZEMPIC [Concomitant]
     Active Substance: SEMAGLUTIDE
  22. PLAVIX [Concomitant]
     Active Substance: CLOPIDOGREL BISULFATE
  23. PROBIOTIC ACIDOPHILUS [LACTOBACILLUS ACIDOPHILUS] [Concomitant]
  24. PROCHLORPERAZINE [Concomitant]
     Active Substance: PROCHLORPERAZINE
  25. PROMETHAZINE [Concomitant]
     Active Substance: PROMETHAZINE HYDROCHLORIDE
  26. REFRESH CLASSIC LUBRICANT EYE DROPS [Concomitant]
  27. ROSUVASTATIN [Concomitant]
     Active Substance: ROSUVASTATIN
  28. SINGULAIR [Concomitant]
     Active Substance: MONTELUKAST SODIUM
  29. TESTOSTERONE [Concomitant]
     Active Substance: TESTOSTERONE
  30. TOBRAMYCIN [Concomitant]
     Active Substance: TOBRAMYCIN\TOBRAMYCIN SULFATE
  31. TRELEGY ELLIPTA [Concomitant]
     Active Substance: FLUTICASONE FUROATE\UMECLIDINIUM BROMIDE\VILANTEROL TRIFENATATE
  32. TYLENOL [Concomitant]
     Active Substance: ACETAMINOPHEN
  33. VITAMIN B12 [Concomitant]
     Active Substance: CYANOCOBALAMIN
  34. VITAMIN D3 [Concomitant]
     Active Substance: CHOLECALCIFEROL
  35. ZITHROMAX [Concomitant]
     Active Substance: AZITHROMYCIN DIHYDRATE
  36. KEYTRUDA [Concomitant]
     Active Substance: PEMBROLIZUMAB

REACTIONS (15)
  - Arthralgia [Not Recovered/Not Resolved]
  - Back pain [Not Recovered/Not Resolved]
  - Dysphonia [Not Recovered/Not Resolved]
  - Fatigue [Not Recovered/Not Resolved]
  - Acne [Not Recovered/Not Resolved]
  - Glossodynia [Not Recovered/Not Resolved]
  - Skin exfoliation [Not Recovered/Not Resolved]
  - Skin lesion [Not Recovered/Not Resolved]
  - Pruritus [Not Recovered/Not Resolved]
  - Nausea [Not Recovered/Not Resolved]
  - Asthenia [Not Recovered/Not Resolved]
  - Muscle spasms [Not Recovered/Not Resolved]
  - Hypertension [Not Recovered/Not Resolved]
  - Blood glucose increased [Not Recovered/Not Resolved]
  - Off label use [Unknown]

NARRATIVE: CASE EVENT DATE: 20240801
